FAERS Safety Report 19509601 (Version 1)
Quarter: 2021Q3

REPORT INFORMATION
  Report Type: Spontaneous
  Country: US (occurrence: US)
  Receive Date: 20210708
  Receipt Date: 20210708
  Transmission Date: 20211014
  Serious: Yes (Hospitalization)
  Sender: FDA-Public Use
  Company Number: US-BAUSCH-BL-2021-022901

PATIENT
  Age: 70 Year
  Sex: Female

DRUGS (1)
  1. DEXAMETHASONE. [Suspect]
     Active Substance: DEXAMETHASONE
     Indication: GLIOBLASTOMA
     Dosage: HIGH DOSES
     Route: 065

REACTIONS (2)
  - Pulmonary cavitation [Recovering/Resolving]
  - Pseudomonas infection [Recovering/Resolving]
